FAERS Safety Report 14176650 (Version 1)
Quarter: 2017Q4

REPORT INFORMATION
  Report Type: Spontaneous
  Country: US (occurrence: US)
  Receive Date: 20171109
  Receipt Date: 20171109
  Transmission Date: 20180321
  Serious: Yes (Disabling)
  Sender: FDA-Public Use
  Company Number: None

PATIENT
  Age: 42 Year
  Sex: Female
  Weight: 63 kg

DRUGS (2)
  1. TRIANCINOLOM CREAM [Suspect]
     Active Substance: TRIAMCINOLONE ACETONIDE
     Indication: ECZEMA
     Route: 061
     Dates: start: 20120911, end: 20150919
  2. CYCLOSPORIN [Concomitant]
     Active Substance: CYCLOSPORINE

REACTIONS (12)
  - Drug abuser [None]
  - Impaired work ability [None]
  - Eye swelling [None]
  - Weight decreased [None]
  - Eczema [None]
  - Neuralgia [None]
  - Oral disorder [None]
  - Rash [None]
  - Alopecia [None]
  - Wound secretion [None]
  - Nerve injury [None]
  - Bedridden [None]

NARRATIVE: CASE EVENT DATE: 20150919
